FAERS Safety Report 16093857 (Version 1)
Quarter: 2019Q2

REPORT INFORMATION
  Report Type: Spontaneous
  Country: US (occurrence: US)
  Receive Date: 20190319
  Receipt Date: 20190319
  Transmission Date: 20190711
  Serious: Yes (Other)
  Sender: FDA-Public Use
  Company Number: None

PATIENT
  Age: 55 Year
  Sex: Female
  Weight: 61.65 kg

DRUGS (1)
  1. LOSARTAN POTASSIUM AND HYDROCHLOROTHIAZIDE [Suspect]
     Active Substance: HYDROCHLOROTHIAZIDE\LOSARTAN POTASSIUM
     Indication: HYPERTENSION
     Dosage: ?          QUANTITY:100 TABLET(S);?
     Route: 048
     Dates: start: 20190223, end: 20190319

REACTIONS (2)
  - Urticaria [None]
  - Product substitution issue [None]

NARRATIVE: CASE EVENT DATE: 20190228
